FAERS Safety Report 15563761 (Version 2)
Quarter: 2018Q4

REPORT INFORMATION
  Report Type: Report from Study
  Country: US (occurrence: US)
  Receive Date: 20181029
  Receipt Date: 20181120
  Transmission Date: 20190205
  Serious: Yes (Death)
  Sender: FDA-Public Use
  Company Number: US-ASTRAZENECA-2018SF40125

PATIENT
  Sex: Male
  Weight: 126.1 kg

DRUGS (1)
  1. KOMBIGLYZE XR [Suspect]
     Active Substance: METFORMIN HYDROCHLORIDE\SAXAGLIPTIN HYDROCHLORIDE
     Dosage: 2.5/1000 MG, TWO, AT NIGHT
     Route: 048
     Dates: start: 20150923, end: 20180212

REACTIONS (1)
  - Lung neoplasm malignant [Fatal]
